FAERS Safety Report 4396712-9 (Version None)
Quarter: 2004Q3

REPORT INFORMATION
  Report Type: 
  Country: None (occurrence: None)
  Receive Date: 20040709
  Receipt Date: 20040629
  Transmission Date: 20050211
  Serious: Yes (Hospitalization, Disabling, Other)
  Sender: FDA-Public Use
  Company Number: 2004EU001317

PATIENT
  Sex: Male

DRUGS (7)
  1. PROGRAF [Suspect]
     Indication: HEART TRANSPLANT
     Dosage: SEE IMAGE
     Route: 048
     Dates: start: 19970101
  2. CELLCEPT [Concomitant]
  3. TOREM (TORASEMIDE) [Concomitant]
  4. RAMIPRIL [Concomitant]
  5. ZOCOR [Concomitant]
  6. EZETIMIBE (EZETIMIBE) [Concomitant]
  7. PEPDUL (FAMOTIDINE) [Concomitant]

REACTIONS (1)
  - CEREBELLAR ATROPHY [None]
